FAERS Safety Report 11204758 (Version 3)
Quarter: 2015Q3

REPORT INFORMATION
  Report Type: Spontaneous
  Country: US (occurrence: None)
  Receive Date: 20150617
  Receipt Date: 20150810
  Transmission Date: 20151125
  Serious: Yes (Other)
  Sender: FDA-Public Use
  Company Number: BTG00263

PATIENT
  Age: 21 Year
  Sex: Female
  Weight: 40 kg

DRUGS (5)
  1. MEROPENEM (MEROPENEM TRIHYDRATE) [Concomitant]
     Active Substance: MEROPENEM
  2. METHOTREXATE (METHOTREXATE SODIUM) [Suspect]
     Active Substance: METHOTREXATE SODIUM
     Indication: OSTEOSARCOMA
     Dosage: 12000 MG/M2, OVER 4H, INFUSION
     Dates: start: 20150602
  3. ACETAZOLAMIDE. [Concomitant]
     Active Substance: ACETAZOLAMIDE
  4. VORAXAZE [Suspect]
     Active Substance: GLUCARPIDASE
     Indication: TOXICITY TO VARIOUS AGENTS
     Dosage: 2000 UNITS, SINGLE (ONCE)
     Dates: start: 20150604
  5. LEUCOVORIN (CALCIUM FOLINATE) [Concomitant]
     Active Substance: LEUCOVORIN

REACTIONS (7)
  - Weight increased [None]
  - Drug effect incomplete [None]
  - Pyrexia [None]
  - Blood creatinine increased [None]
  - Toxicity to various agents [None]
  - Renal tubular necrosis [None]
  - Fluid retention [None]

NARRATIVE: CASE EVENT DATE: 20150604
